FAERS Safety Report 5707375-1 (Version None)
Quarter: 2008Q2

REPORT INFORMATION
  Report Type: 
  Country: None (occurrence: None)
  Receive Date: 20080416
  Receipt Date: 20080409
  Transmission Date: 20081010
  Serious: Yes (Other)
  Sender: FDA-Public Use
  Company Number: US-ASTRAZENECA-2008AC00897

PATIENT
  Age: 64 Year
  Sex: Female

DRUGS (4)
  1. CANDESARTAN CILEXETIL [Suspect]
     Indication: HYPERTENSION
  2. CONTRAST AGENT [Concomitant]
     Indication: COMPUTERISED TOMOGRAM
     Route: 042
  3. N-ACETYLCYSTEINE [Concomitant]
     Indication: COMPUTERISED TOMOGRAM
  4. DEXTROSE-SALINE [Concomitant]
     Indication: COMPUTERISED TOMOGRAM
     Route: 042

REACTIONS (2)
  - NEPHROPATHY TOXIC [None]
  - RENAL FAILURE ACUTE [None]
